FAERS Safety Report 25596015 (Version 1)
Quarter: 2025Q3

REPORT INFORMATION
  Report Type: Spontaneous
  Country: US (occurrence: None)
  Receive Date: 20250723
  Receipt Date: 20250723
  Transmission Date: 20251020
  Serious: Yes (Hospitalization)
  Sender: FDA-CTU
  Company Number: None

PATIENT
  Age: 74 Year
  Sex: Male
  Weight: 84.8 kg

DRUGS (4)
  1. FLUOROURACIL [Suspect]
     Active Substance: FLUOROURACIL
     Dates: start: 20250703
  2. CAMPTOSAR [Suspect]
     Active Substance: IRINOTECAN HYDROCHLORIDE
     Dates: start: 20250701
  3. LEUCOVORIN CALCIUM [Concomitant]
     Active Substance: LEUCOVORIN CALCIUM
     Dates: start: 20250701
  4. ELOXATIN [Concomitant]
     Active Substance: OXALIPLATIN

REACTIONS (8)
  - Neutropenia [None]
  - Colitis [None]
  - Hypotension [None]
  - Blood creatinine increased [None]
  - Blood culture positive [None]
  - Atrial fibrillation [None]
  - Escherichia test positive [None]
  - Atrial flutter [None]

NARRATIVE: CASE EVENT DATE: 20250711
